FAERS Safety Report 9806183 (Version 1)
Quarter: 2014Q1

REPORT INFORMATION
  Report Type: Spontaneous
  Country: US (occurrence: US)
  Receive Date: 20140109
  Receipt Date: 20140109
  Transmission Date: 20141002
  Serious: Yes (Other)
  Sender: FDA-Public Use
  Company Number: US-RB-061635-13

PATIENT
  Sex: Female

DRUGS (1)
  1. MUCINEX FAST MAX SEVERE CONGESTION + COUGH LIQUID [Suspect]
     Indication: PRODUCT USED FOR UNKNOWN INDICATION
     Route: 048
     Dates: start: 20131226

REACTIONS (2)
  - Loss of consciousness [Unknown]
  - Diarrhoea [Unknown]
